FAERS Safety Report 11848928 (Version 1)
Quarter: 2015Q4

REPORT INFORMATION
  Report Type: Spontaneous
  Country: US (occurrence: None)
  Receive Date: 20151217
  Receipt Date: 20151217
  Transmission Date: 20160305
  Serious: Yes (Other)
  Sender: FDA-Public Use
  Company Number: None

PATIENT
  Age: 57 Year
  Sex: Female

DRUGS (1)
  1. HUMIRA [Suspect]
     Active Substance: ADALIMUMAB
     Indication: RHEUMATOID ARTHRITIS
     Dosage: 40MG/0.8ML
     Route: 058

REACTIONS (7)
  - Pyrexia [None]
  - Pain [None]
  - Rash erythematous [None]
  - Influenza like illness [None]
  - Urticaria [None]
  - Injection site reaction [None]
  - Arthralgia [None]

NARRATIVE: CASE EVENT DATE: 20151203
